FAERS Safety Report 23273229 (Version 1)
Quarter: 2023Q4

REPORT INFORMATION
  Report Type: Spontaneous
  Country: US (occurrence: US)
  Receive Date: 20231207
  Receipt Date: 20231207
  Transmission Date: 20240110
  Serious: No
  Sender: FDA-Public Use
  Company Number: AP-2023-US-025905

PATIENT
  Age: 85 Year
  Sex: Female
  Weight: 65.8 kg

DRUGS (7)
  1. CROMOLYN SODIUM [Suspect]
     Active Substance: CROMOLYN SODIUM
     Indication: Asthma
     Dosage: 1 CC. IN 8 OZ OF WATER, BID
     Route: 048
     Dates: start: 20230820
  2. LEVOTHYROXINE [Concomitant]
     Active Substance: LEVOTHYROXINE
  3. FLECAINIDE [Concomitant]
     Active Substance: FLECAINIDE
  4. VITAMINS [Concomitant]
     Active Substance: VITAMINS
  5. Eye vitamin [Concomitant]
  6. COENZYME Q10 [Concomitant]
     Active Substance: DIETARY SUPPLEMENT\UBIDECARENONE
  7. Calcium and Vit D supplements [Concomitant]

REACTIONS (2)
  - Insomnia [Unknown]
  - Frequent bowel movements [Unknown]

NARRATIVE: CASE EVENT DATE: 20230820
